FAERS Safety Report 11823051 (Version 2)
Quarter: 2015Q4

REPORT INFORMATION
  Report Type: Spontaneous
  Country: IT (occurrence: IT)
  Receive Date: 20151210
  Receipt Date: 20151229
  Transmission Date: 20160305
  Serious: Yes (Hospitalization)
  Sender: FDA-Public Use
  Company Number: IT-NOVOPROD-472775

PATIENT
  Age: 23 Year
  Sex: Male

DRUGS (2)
  1. FEMIPRES [Suspect]
     Active Substance: MOEXIPRIL HYDROCHLORIDE
     Indication: SUICIDE ATTEMPT
     Dosage: 420 MG, QD (ADMINISTRATION OF 28 TABLET)
     Route: 048
     Dates: start: 20151022, end: 20151022
  2. NOVORAPID [Suspect]
     Active Substance: INSULIN ASPART
     Indication: SUICIDE ATTEMPT
     Dosage: 100 IU
     Route: 065
     Dates: start: 20151022, end: 20151022

REACTIONS (2)
  - Suicide attempt [Recovered/Resolved]
  - Drug abuse [Recovered/Resolved]

NARRATIVE: CASE EVENT DATE: 20151022
